FAERS Safety Report 4614786-4 (Version None)
Quarter: 2005Q1

REPORT INFORMATION
  Report Type: 
  Country: None (occurrence: None)
  Receive Date: 20050322
  Receipt Date: 20050310
  Transmission Date: 20050727
  Serious: Yes (Other)
  Sender: FDA-Public Use
  Company Number: US-BRISTOL-MYERS SQUIBB COMPANY-12892477

PATIENT
  Age: 7 Year
  Sex: Male
  Weight: 28 kg

DRUGS (3)
  1. ABILIFY [Suspect]
     Indication: AUTISM
     Dosage: INITIATED AT 2.5 MG/DAY, INCREASED TO 5 MG/DAY ABOUT 1 1/2 YEARS AGO.
     Route: 048
  2. CLONIDINE [Concomitant]
  3. VITAMINS [Concomitant]

REACTIONS (1)
  - BLOOD THYROID STIMULATING HORMONE INCREASED [None]
